FAERS Safety Report 9723117 (Version 1)
Quarter: 2013Q4

REPORT INFORMATION
  Report Type: Spontaneous
  Country: US (occurrence: None)
  Receive Date: 20131127
  Receipt Date: 20131127
  Transmission Date: 20140711
  Serious: No
  Sender: FDA-Public Use
  Company Number: None

PATIENT
  Age: 71 Year
  Sex: Female
  Weight: 45.36 kg

DRUGS (7)
  1. EDARBI [Suspect]
     Indication: HYPERTENSION
     Dosage: 1 PILL, 1/PER DAY
     Route: 048
     Dates: start: 201308
  2. SYNTHROID 100 [Concomitant]
  3. VITAMINS [Concomitant]
  4. CALCIUM [Concomitant]
  5. MAGNESIUM [Suspect]
  6. MULTIVITAMIN [Concomitant]
  7. COQ ENZYME 10 [Concomitant]

REACTIONS (1)
  - Raynaud^s phenomenon [None]
